FAERS Safety Report 5167226-3 (Version None)
Quarter: 2006Q4

REPORT INFORMATION
  Report Type: 
  Country: None (occurrence: None)
  Receive Date: 20061130
  Receipt Date: 20061120
  Transmission Date: 20070319
  Serious: Yes (Hospitalization)
  Sender: FDA-Public Use
  Company Number: 2006143149

PATIENT
  Age: 29 Year
  Sex: Male

DRUGS (1)
  1. LYRICA [Suspect]
     Indication: TRIGEMINAL NEURALGIA
     Dosage: (3 IN 1 D), ORAL
     Route: 048
     Dates: start: 20061115, end: 20061117

REACTIONS (4)
  - PURPURA [None]
  - RASH PRURITIC [None]
  - RASH PUSTULAR [None]
  - VIRAL INFECTION [None]
